FAERS Safety Report 20136818 (Version 2)
Quarter: 2021Q4

REPORT INFORMATION
  Report Type: Other
  Country: US (occurrence: US)
  Receive Date: 20211201
  Receipt Date: 20211201
  Transmission Date: 20220304
  Serious: No
  Sender: FDA-Public Use
  Company Number: US-LEADIANT BIOSCIENCES INC-2020STPI000412

PATIENT
  Sex: Male

DRUGS (11)
  1. CYSTARAN [Suspect]
     Active Substance: CYSTEAMINE HYDROCHLORIDE
     Indication: Cystinosis
     Dosage: ONE DROP BOTH EYES EVERY WAKING HOUR
     Route: 047
     Dates: start: 20160830
  2. IRON [Concomitant]
     Active Substance: IRON
  3. CHOLECALCIFEROL [Concomitant]
     Active Substance: CHOLECALCIFEROL
  4. ADALAT [Concomitant]
     Active Substance: NIFEDIPINE
  5. LEVOCARNITINE [Concomitant]
     Active Substance: LEVOCARNITINE
  6. POLYCAL [Concomitant]
  7. CYSTAGON [Concomitant]
     Active Substance: CYSTEAMINE BITARTRATE
  8. POTASSIUM CHLORIDE [Concomitant]
     Active Substance: POTASSIUM CHLORIDE
  9. NUTROPIN [Concomitant]
     Active Substance: SOMATROPIN
  10. POTASSIUM CHLORIDE [Concomitant]
     Active Substance: POTASSIUM CHLORIDE
  11. MAGNESIUM [Concomitant]
     Active Substance: MAGNESIUM

REACTIONS (1)
  - Vision blurred [Not Recovered/Not Resolved]
